FAERS Safety Report 8989804 (Version 2)
Quarter: 2013Q2

REPORT INFORMATION
  Report Type: Report from Study
  Country: US (occurrence: US)
  Receive Date: 20121228
  Receipt Date: 20130408
  Transmission Date: 20140414
  Serious: Yes (Hospitalization, Congenital Anomaly)
  Sender: FDA-Public Use
  Company Number: US-ABBOTT-12P-163-1025198-00

PATIENT
  Sex: Male

DRUGS (5)
  1. HUMIRA [Suspect]
     Indication: MATERNAL EXPOSURE TIMING UNSPECIFIED
     Route: 064
  2. HIB [Concomitant]
     Indication: IMMUNISATION
     Route: 030
     Dates: start: 20130215, end: 20130215
  3. DAPTACEL [Concomitant]
     Indication: IMMUNISATION
     Route: 030
     Dates: start: 20130215, end: 20130215
  4. PREVNAR 13 [Concomitant]
     Indication: IMMUNISATION
     Route: 030
     Dates: start: 20130215, end: 20130215
  5. POLIO [Concomitant]
     Indication: IMMUNISATION
     Dates: start: 20120830, end: 20120830

REACTIONS (8)
  - Low birth weight baby [Recovered/Resolved]
  - Foetal exposure during pregnancy [Unknown]
  - Premature baby [Recovered/Resolved]
  - Umbilical cord abnormality [Recovered/Resolved]
  - Neonatal hypoxia [Recovered/Resolved]
  - Developmental coordination disorder [Not Recovered/Not Resolved]
  - Plagiocephaly [Not Recovered/Not Resolved]
  - Craniosynostosis [Not Recovered/Not Resolved]
